FAERS Safety Report 24461997 (Version 4)
Quarter: 2024Q4

REPORT INFORMATION
  Report Type: Spontaneous
  Country: CA (occurrence: CA)
  Receive Date: 20241018
  Receipt Date: 20241226
  Transmission Date: 20250114
  Serious: Yes (Hospitalization)
  Sender: CELLTRION
  Company Number: CA-PFIZER INC-202400275175

PATIENT

DRUGS (1)
  1. INFLECTRA [Suspect]
     Active Substance: INFLIXIMAB-DYYB
     Indication: Crohn^s disease
     Dosage: 840 MG, EVERY 8 WEEKS (WEEK 2, WEEK 6 INDUCTION PERIOD WEEK 0 HOSPITAL START)
     Route: 042
     Dates: start: 20240916

REACTIONS (3)
  - Fall [Recovering/Resolving]
  - Seizure [Recovering/Resolving]
  - Concussion [Recovering/Resolving]

NARRATIVE: CASE EVENT DATE: 20241001
